FAERS Safety Report 8583704-9 (Version None)
Quarter: 2012Q3

REPORT INFORMATION
  Report Type: 
  Country: None (occurrence: None)
  Receive Date: 20120809
  Receipt Date: 20120717
  Transmission Date: 20120928
  Serious: Yes (Life-Threatening)
  Sender: FDA-Public Use
  Company Number: ZA-009507513-2012SP033677

PATIENT

DRUGS (3)
  1. ROCURONIUM BROMIDE [Suspect]
     Indication: MUSCLE RELAXANT THERAPY
     Dosage: 65MG EQUAL TO 6.5 ML
     Dates: start: 20120503
  2. PROPOFOL [Concomitant]
     Dosage: PROPOFOL 1% FRESENIUS (15 ML)
     Dates: start: 20120503
  3. SUFENTANIL CITRATE [Concomitant]
     Dosage: 0.01 MG EQUAL TO 2 ML
     Dates: start: 20120503

REACTIONS (2)
  - URTICARIA [None]
  - BRONCHOSPASM [None]
